FAERS Safety Report 11359536 (Version 1)
Quarter: 2015Q3

REPORT INFORMATION
  Report Type: Spontaneous
  Country: US (occurrence: None)
  Receive Date: 20150807
  Receipt Date: 20150807
  Transmission Date: 20151125
  Serious: No
  Sender: FDA-Public Use
  Company Number: None

PATIENT
  Age: 9 Year
  Sex: Female

DRUGS (3)
  1. FOLIC ACID. [Concomitant]
     Active Substance: FOLIC ACID
  2. VITAMIN D3 [Concomitant]
     Active Substance: CHOLECALCIFEROL
  3. EXJADE [Suspect]
     Active Substance: DEFERASIROX
     Indication: HAEMOCHROMATOSIS
     Route: 048
     Dates: start: 20150626

REACTIONS (2)
  - Eye swelling [None]
  - Contusion [None]
